FAERS Safety Report 15271808 (Version 1)
Quarter: 2018Q3

REPORT INFORMATION
  Report Type: Spontaneous
  Country: FR (occurrence: FR)
  Receive Date: 20180813
  Receipt Date: 20180813
  Transmission Date: 20181010
  Serious: Yes (Hospitalization)
  Sender: FDA-Public Use
  Company Number: PHHY2018FR069568

PATIENT
  Age: 4 Month
  Sex: Male
  Weight: 6.6 kg

DRUGS (1)
  1. TEGRETOL [Suspect]
     Active Substance: CARBAMAZEPINE
     Indication: CLONIC CONVULSION
     Dosage: 10 ML, UNK (TOTAL)
     Route: 048

REACTIONS (4)
  - Medication error [Unknown]
  - Accidental overdose [Unknown]
  - Incorrect dosage administered [Unknown]
  - Somnolence [Recovered/Resolved]

NARRATIVE: CASE EVENT DATE: 20180611
